FAERS Safety Report 5456907-X (Version None)
Quarter: 2007Q3

REPORT INFORMATION
  Report Type: 
  Country: None (occurrence: None)
  Receive Date: 20070917
  Receipt Date: 20070917
  Transmission Date: 20080115
  Serious: No
  Sender: FDA-Public Use
  Company Number: None

PATIENT
  Sex: Male

DRUGS (2)
  1. SOTALOL HCL [Suspect]
     Indication: BRUGADA SYNDROME
     Dosage: 80MG BID PO
     Route: 048
     Dates: start: 20051101, end: 20060201
  2. SOTALOL HCL [Suspect]
     Indication: VENTRICULAR TACHYCARDIA
     Dosage: 80MG BID PO
     Route: 048
     Dates: start: 20051101, end: 20060201

REACTIONS (4)
  - DIZZINESS [None]
  - PERIPHERAL COLDNESS [None]
  - PHARMACEUTICAL PRODUCT COMPLAINT [None]
  - PRESYNCOPE [None]
